FAERS Safety Report 9913947 (Version 2)
Quarter: 2014Q1

REPORT INFORMATION
  Report Type: Spontaneous
  Country: US (occurrence: US)
  Receive Date: 20140220
  Receipt Date: 20140303
  Transmission Date: 20141002
  Serious: Yes (Death, Hospitalization)
  Sender: FDA-Public Use
  Company Number: US-ACTELION-A-NJ2014-94854

PATIENT
  Age: 70 Year
  Sex: Male

DRUGS (2)
  1. TRACLEER [Suspect]
     Indication: PULMONARY ARTERIAL HYPERTENSION
     Dosage: UNK
     Route: 048
     Dates: end: 20140117
  2. ADCIRCA [Concomitant]

REACTIONS (8)
  - Lung neoplasm malignant [Fatal]
  - Disease progression [Fatal]
  - Pneumonia [Fatal]
  - Respiratory syncytial virus infection [Fatal]
  - Septic shock [Unknown]
  - Chronic obstructive pulmonary disease [Unknown]
  - Hypercapnia [Unknown]
  - Respiratory failure [Unknown]
